FAERS Safety Report 12804639 (Version 1)
Quarter: 2016Q4

REPORT INFORMATION
  Report Type: Spontaneous
  Country: US (occurrence: US)
  Receive Date: 20161003
  Receipt Date: 20161003
  Transmission Date: 20170207
  Serious: No
  Sender: FDA-Public Use
  Company Number: US-BANPHARM-20164627

PATIENT
  Sex: Male

DRUGS (1)
  1. LOPERAMIDE HCL CAPSULES, 2 MG [Suspect]
     Active Substance: LOPERAMIDE HYDROCHLORIDE
     Dosage: 2 DF,
     Route: 048
     Dates: start: 20160121

REACTIONS (4)
  - Throat irritation [Unknown]
  - Chest pain [Unknown]
  - Oesophageal pain [Unknown]
  - Product quality issue [Unknown]
